FAERS Safety Report 16881710 (Version 1)
Quarter: 2019Q4

REPORT INFORMATION
  Report Type: Spontaneous
  Country: DE (occurrence: DE)
  Receive Date: 20191003
  Receipt Date: 20191003
  Transmission Date: 20200122
  Serious: Yes (Other)
  Sender: FDA-Public Use
  Company Number: DE-INDIVIOR US-INDV-121739-2019

PATIENT
  Age: 43 Year
  Sex: Female
  Weight: 64 kg

DRUGS (5)
  1. CYMBALTA [Interacting]
     Active Substance: DULOXETINE HYDROCHLORIDE
     Indication: DEPRESSIVE SYMPTOM
     Dosage: 30 MILLIGRAM
     Route: 065
     Dates: start: 201210
  2. CYMBALTA [Interacting]
     Active Substance: DULOXETINE HYDROCHLORIDE
     Indication: INTERVERTEBRAL DISC PROTRUSION
  3. SUBUTEX [Suspect]
     Active Substance: BUPRENORPHINE HYDROCHLORIDE
     Indication: PAIN
     Dosage: 12- 14MG
     Route: 060
     Dates: start: 20131101, end: 20190830
  4. CYMBALTA [Interacting]
     Active Substance: DULOXETINE HYDROCHLORIDE
     Indication: SLEEP DISORDER
     Dosage: 60MG
     Route: 048
     Dates: start: 20130101, end: 20190830
  5. CYMBALTA [Interacting]
     Active Substance: DULOXETINE HYDROCHLORIDE
     Indication: PAIN

REACTIONS (26)
  - Poor peripheral circulation [Recovered/Resolved]
  - Blood cholesterol abnormal [Unknown]
  - Alanine aminotransferase increased [Unknown]
  - Depression [Recovered/Resolved]
  - Delusion [Recovered/Resolved]
  - Renal function test abnormal [Unknown]
  - Mental disorder [Recovered/Resolved]
  - Loss of personal independence in daily activities [Recovered/Resolved]
  - Gastritis [Recovered/Resolved]
  - Anxiety [Recovered/Resolved]
  - Depersonalisation/derealisation disorder [Recovered/Resolved]
  - Pain [Recovered/Resolved]
  - Aspartate aminotransferase increased [Unknown]
  - Illusion [Recovered/Resolved]
  - Memory impairment [Recovered/Resolved]
  - Disturbance in attention [Recovered/Resolved]
  - Panic attack [Recovered/Resolved]
  - Overdose [Unknown]
  - Suicidal ideation [Recovered/Resolved]
  - Apathy [Recovered/Resolved]
  - Paranoia [Recovered/Resolved]
  - Drug interaction [Unknown]
  - Headache [Recovered/Resolved]
  - Psychotic disorder [Recovered/Resolved]
  - Limb discomfort [Recovered/Resolved]
  - Palpitations [Recovered/Resolved]

NARRATIVE: CASE EVENT DATE: 20130101
